FAERS Safety Report 24878118 (Version 1)
Quarter: 2025Q1

REPORT INFORMATION
  Report Type: Spontaneous
  Country: US (occurrence: US)
  Receive Date: 20250123
  Receipt Date: 20250123
  Transmission Date: 20250408
  Serious: Yes (Hospitalization)
  Sender: MYLAN
  Company Number: US-MYLANLABS-2025M1004608

PATIENT
  Age: 29 Year
  Sex: Female

DRUGS (10)
  1. ALPRAZOLAM [Suspect]
     Active Substance: ALPRAZOLAM
     Indication: Anxiety
     Route: 065
  2. LITHIUM [Suspect]
     Active Substance: LITHIUM
     Indication: Suicidal ideation
     Route: 065
  3. LITHIUM [Suspect]
     Active Substance: LITHIUM
     Indication: Depression
     Route: 065
  4. LITHIUM [Suspect]
     Active Substance: LITHIUM
     Indication: Affect lability
  5. PRAZOSIN [Suspect]
     Active Substance: PRAZOSIN
     Indication: Nightmare
     Route: 065
  6. PRAZOSIN [Suspect]
     Active Substance: PRAZOSIN
     Indication: Hyperarousal
     Route: 065
  7. PRAZOSIN [Suspect]
     Active Substance: PRAZOSIN
     Indication: Anxiety
  8. PHENOBARBITAL [Suspect]
     Active Substance: PHENOBARBITAL
     Indication: Alcohol withdrawal syndrome
     Route: 065
  9. NALTREXONE [Suspect]
     Active Substance: NALTREXONE
     Indication: Alcoholism
     Route: 048
  10. NALTREXONE [Suspect]
     Active Substance: NALTREXONE
     Indication: Alcoholism
     Route: 065

REACTIONS (5)
  - Drug withdrawal syndrome [Unknown]
  - Product use issue [Unknown]
  - Treatment noncompliance [Unknown]
  - Intentional product misuse [Unknown]
  - Drug ineffective [Unknown]
